FAERS Safety Report 8207852-8 (Version None)
Quarter: 2012Q1

REPORT INFORMATION
  Report Type: 
  Country: None (occurrence: None)
  Receive Date: 20120314
  Receipt Date: 20120305
  Transmission Date: 20120608
  Serious: Yes (Other)
  Sender: FDA-Public Use
  Company Number: US-JNJFOC-20120302300

PATIENT
  Sex: Male

DRUGS (1)
  1. XARELTO [Suspect]
     Indication: CEREBROVASCULAR ACCIDENT
     Route: 048
     Dates: start: 20120303

REACTIONS (6)
  - BRADYPHRENIA [None]
  - DYSGEUSIA [None]
  - HAEMORRHAGE SUBCUTANEOUS [None]
  - DIZZINESS [None]
  - FATIGUE [None]
  - DRUG PRESCRIBING ERROR [None]
